FAERS Safety Report 11287193 (Version 1)
Quarter: 2015Q3

REPORT INFORMATION
  Report Type: Spontaneous
  Country: US (occurrence: None)
  Receive Date: 20150720
  Receipt Date: 20150720
  Transmission Date: 20151125
  Serious: Yes (Other)
  Sender: FDA-Public Use
  Company Number: None

PATIENT
  Age: 64 Year
  Sex: Female
  Weight: 90.72 kg

DRUGS (4)
  1. CLONAZEPAM. [Concomitant]
     Active Substance: CLONAZEPAM
  2. ANASTROZOLE. [Suspect]
     Active Substance: ANASTROZOLE
     Indication: BREAST CANCER
     Route: 048
     Dates: start: 20150515, end: 20150630
  3. DEPAKOTE [Concomitant]
     Active Substance: DIVALPROEX SODIUM
  4. NORVASC [Concomitant]
     Active Substance: AMLODIPINE BESYLATE

REACTIONS (7)
  - Urticaria [None]
  - Hypersensitivity [None]
  - Product packaging issue [None]
  - Dyspnoea [None]
  - Pruritus [None]
  - Product quality issue [None]
  - Rash [None]

NARRATIVE: CASE EVENT DATE: 20150612
